FAERS Safety Report 12657497 (Version 1)
Quarter: 2016Q3

REPORT INFORMATION
  Report Type: Report from Study
  Country: US (occurrence: US)
  Receive Date: 20160816
  Receipt Date: 20160816
  Transmission Date: 20161109
  Serious: No
  Sender: FDA-Public Use
  Company Number: US-CELGENEUS-USA-2016083653

PATIENT
  Age: 75 Year
  Sex: Female
  Weight: 138 kg

DRUGS (1)
  1. THALOMID [Suspect]
     Active Substance: THALIDOMIDE
     Indication: PLASMA CELL MYELOMA
     Dosage: INCREASED/DECREASED
     Route: 048

REACTIONS (1)
  - Unevaluable event [Unknown]
